FAERS Safety Report 23669387 (Version 2)
Quarter: 2024Q2

REPORT INFORMATION
  Report Type: Spontaneous
  Country: US (occurrence: US)
  Receive Date: 20240325
  Receipt Date: 20240412
  Transmission Date: 20240715
  Serious: No
  Sender: FDA-Public Use
  Company Number: US-BAYER-2024A044003

PATIENT
  Age: 41 Year
  Sex: Female

DRUGS (3)
  1. MIRENA [Suspect]
     Active Substance: LEVONORGESTREL
     Dosage: 20?G/DAY
     Route: 015
     Dates: start: 20231130
  2. ESTRADIOL [Suspect]
     Active Substance: ESTRADIOL
     Indication: Premature menopause
  3. PREMPRO [Suspect]
     Active Substance: ESTROGENS, CONJUGATED\MEDROXYPROGESTERONE ACETATE

REACTIONS (2)
  - Device dislocation [None]
  - Hot flush [None]

NARRATIVE: CASE EVENT DATE: 20240201
